FAERS Safety Report 20761767 (Version 1)
Quarter: 2022Q2

REPORT INFORMATION
  Report Type: Spontaneous
  Country: US (occurrence: None)
  Receive Date: 20220427
  Receipt Date: 20220427
  Transmission Date: 20220721
  Serious: No
  Sender: FDA-Public Use
  Company Number: None

PATIENT
  Sex: Female

DRUGS (1)
  1. TREMFYA [Suspect]
     Active Substance: GUSELKUMAB
     Indication: Psoriasis
     Dosage: OTHER FREQUENCY: EVERY 8 WEEKS?
     Route: 058
     Dates: start: 202103

REACTIONS (3)
  - Incorrect dose administered by device [None]
  - Device malfunction [None]
  - Injection site haemorrhage [None]
